FAERS Safety Report 6015270-6 (Version None)
Quarter: 2008Q4

REPORT INFORMATION
  Report Type: 
  Country: None (occurrence: None)
  Receive Date: 20081219
  Receipt Date: 20081219
  Transmission Date: 20090506
  Serious: Yes (Hospitalization)
  Sender: FDA-Public Use
  Company Number: None

PATIENT
  Age: 27 Year
  Sex: Female
  Weight: 100.2 kg

DRUGS (2)
  1. VANCOMYCIN [Suspect]
     Indication: INFECTION PROPHYLAXIS
     Dosage: IV BOLUS
     Route: 040
     Dates: start: 20081205, end: 20081212
  2. CIPRO [Suspect]
     Indication: INFECTION PROPHYLAXIS
     Dosage: PO
     Route: 048
     Dates: start: 20081205, end: 20081212

REACTIONS (2)
  - RENAL INJURY [None]
  - TUBULOINTERSTITIAL NEPHRITIS [None]
